FAERS Safety Report 23660416 (Version 3)
Quarter: 2024Q2

REPORT INFORMATION
  Report Type: Spontaneous
  Country: CA (occurrence: CA)
  Receive Date: 20240321
  Receipt Date: 20240524
  Transmission Date: 20240716
  Serious: Yes (Hospitalization, Other)
  Sender: FDA-Public Use
  Company Number: CA-PFIZER INC-202400068549

PATIENT
  Age: 60 Year
  Sex: Female

DRUGS (9)
  1. SULFASALAZINE [Suspect]
     Active Substance: SULFASALAZINE
     Indication: Psoriatic arthropathy
     Dosage: 500 MG
     Route: 065
     Dates: start: 2019
  2. SULFASALAZINE [Suspect]
     Active Substance: SULFASALAZINE
     Dosage: 1000 MG, 2X/DAY
     Route: 065
     Dates: start: 201903
  3. SULFASALAZINE [Suspect]
     Active Substance: SULFASALAZINE
     Dosage: 1000 MG, 2X/DAY
     Route: 065
     Dates: start: 202003
  4. ABRILADA [Concomitant]
     Active Substance: ADALIMUMAB-AFZB
     Indication: Psoriatic arthropathy
     Dosage: 40 MG, EVERY 2 WEEKS
     Route: 058
     Dates: start: 20240521
  5. HYDROXYCHLOROQUINE [Concomitant]
     Active Substance: HYDROXYCHLOROQUINE
     Dosage: 200 MG, FREQUENCY: UNKNOWN
     Route: 065
     Dates: start: 2019
  6. METHOTREXATE [Concomitant]
     Active Substance: METHOTREXATE
     Indication: Psoriatic arthropathy
     Dosage: 25 MG, WEEKLY
     Route: 058
     Dates: start: 202302, end: 202304
  7. MOMETASON TEVA [Concomitant]
     Dosage: UNK
  8. LEFLUNOMIDE [Concomitant]
     Active Substance: LEFLUNOMIDE
     Dosage: 20 MG
     Route: 065
     Dates: start: 202401
  9. VIMOVO [Concomitant]
     Active Substance: ESOMEPRAZOLE MAGNESIUM\NAPROXEN
     Dosage: 500 MG, FREQUENCY: UNKNOWN
     Route: 065
     Dates: start: 2019

REACTIONS (5)
  - Condition aggravated [Unknown]
  - Breast cancer female [Unknown]
  - Drug ineffective [Unknown]
  - Lymphoedema [Unknown]
  - Off label use [Unknown]

NARRATIVE: CASE EVENT DATE: 20230101
